FAERS Safety Report 6280942-5 (Version None)
Quarter: 2009Q3

REPORT INFORMATION
  Report Type: 
  Country: None (occurrence: None)
  Receive Date: 20090724
  Receipt Date: 20090713
  Transmission Date: 20100115
  Serious: Yes (Hospitalization)
  Sender: FDA-Public Use
  Company Number: JP-BRISTOL-MYERS SQUIBB COMPANY-12546339

PATIENT
  Age: 34 Year
  Sex: Female

DRUGS (22)
  1. EFAVIRENZ [Suspect]
     Indication: HIV INFECTION
     Dosage: 10-MAR-2000 TO 27-OCT-2000, RESTARTED 30-JAN-2001 CONTINUED
     Route: 048
     Dates: start: 20000310
  2. INDINIVIR SULFATE [Suspect]
     Indication: HIV INFECTION
     Dosage: 2.4 GRAMS DAILY FROM 31-AUG-1998 TO 09-SEP-1998, RESTARTED 10-MAR-2000
     Route: 048
     Dates: start: 19980831, end: 20001027
  3. RITONAVIR [Suspect]
     Indication: HIV INFECTION
     Route: 048
     Dates: start: 20000310, end: 20001027
  4. ABACAVIR SULFATE [Suspect]
     Indication: HIV INFECTION
     Route: 048
     Dates: start: 20010130
  5. LOPINAVIR AND RITONAVIR [Suspect]
     Indication: HIV INFECTION
     Route: 048
     Dates: start: 20010130
  6. SULFAMETHOXAZOLE AND TRIMETHOPRIM [Suspect]
     Indication: PROPHYLAXIS
     Dosage: 0.15GM19DEC00,0.6GM20DEC-00,0.7GM21-DEC-00,0.8GM22-DEC-00,960MG22-DEC-00,960MG3XDAY13JAN01TO19 MAR02
     Route: 048
     Dates: start: 20001219, end: 20020319
  7. CLARITHROMYCIN [Suspect]
     Indication: MYCOBACTERIUM AVIUM COMPLEX INFECTION
     Dosage: STOPPED 01-DEC-1998 AND RESTARTED AT 800 MG DAILY ON 28-OCT-2000
     Route: 048
     Dates: start: 19981008
  8. ETHAMBUTOL HYDROCHLORIDE [Suspect]
     Indication: MYCOBACTERIUM AVIUM COMPLEX INFECTION
     Dosage: 500 MG DAILY 25-OCT-98 TO 01-DEC-98 AND 12-DEC-98 TO 14-JUN-99, 250 MG X2DAY 28-OCT-00 TO 2001
     Route: 048
     Dates: start: 19981025, end: 20011130
  9. DENOSINE [Suspect]
     Indication: CYTOMEGALOVIRUS CHORIORETINITIS
     Dosage: 5 MGX2/D 2/15-3/6/2000, 5 MG/D 3/7-4/2/2000, 5 MGX2/D 4/3-4/24/2000, 5 MG/D 4/25-4/26/2000
     Route: 041
     Dates: start: 20000215, end: 20000426
  10. FOSCAVIR [Suspect]
     Indication: CYTOMEGALOVIRUS CHORIORETINITIS
     Dosage: 180MG 25JAN-14FEB, 90MG 15FEB-03MAR2000, 98MG 04APR-06APR, 65MG 07APR-26APR2000
     Route: 041
     Dates: start: 20000125, end: 20000426
  11. HYDROCORTISONE [Concomitant]
     Dosage: 23JUN00TO27OCT00,03OCT00TO11MAY00,29OCT00TO02OCT01,12MAY02TO20AUG02,21AUG02TO18MAR03,19MAR03
     Dates: start: 20000407
  12. HYDROCORTISONE SODIUM PHOSPHATE [Concomitant]
     Dosage: 22-MAR-00 TO 25-MAR-00, 26-MAR-00 TO 27-MAR-00, 28-MAR-00 TO 30-MAR-00, 31-MAR-00 TO 06-APR-00
     Dates: start: 20000322, end: 20000406
  13. HYDROXYZINE HCL [Concomitant]
     Dates: start: 20000102, end: 20000501
  14. LAMIVUDINE [Concomitant]
     Dates: start: 20000831, end: 20001118
  15. MORPHINE HCL ELIXIR [Concomitant]
     Dosage: ^28-DEC-99 TO 14-MAR-00, 02-JAN-00 TO 01-MAY-00, 15-MAR-00 CONTINUED^
     Dates: start: 19991228
  16. PREDNISOLONE [Concomitant]
     Dates: start: 20000310, end: 20000321
  17. RIFAMPIN [Concomitant]
     Dates: start: 20001028, end: 20010213
  18. ROXITHROMYCIN [Concomitant]
     Dates: start: 20000131, end: 20001027
  19. ZIDOVUDINE [Concomitant]
     Dates: start: 20000831, end: 20000909
  20. CIPROFLOXACIN HCL [Concomitant]
     Dates: start: 20001119, end: 20020220
  21. DEXTROSE [Concomitant]
     Dates: start: 20000102, end: 20000301
  22. DEXTROSE 5% + ELECTROLYTES [Concomitant]
     Dates: start: 20000125, end: 20010207

REACTIONS (10)
  - BLOOD ALKALINE PHOSPHATASE INCREASED [None]
  - CACHEXIA [None]
  - CALCULUS URINARY [None]
  - CREATININE RENAL CLEARANCE DECREASED [None]
  - DIZZINESS [None]
  - ELECTROLYTE IMBALANCE [None]
  - GAMMA-GLUTAMYLTRANSFERASE INCREASED [None]
  - HYPERLIPIDAEMIA [None]
  - NAUSEA [None]
  - VOMITING [None]
